FAERS Safety Report 25141090 (Version 1)
Quarter: 2025Q2

REPORT INFORMATION
  Report Type: Spontaneous
  Country: US (occurrence: None)
  Receive Date: 20250328
  Receipt Date: 20250328
  Transmission Date: 20250717
  Serious: No
  Sender: FDA-CTU
  Company Number: None

PATIENT
  Age: 71 Year
  Sex: Female
  Weight: 70.31 kg

DRUGS (20)
  1. SCEMBLIX [Suspect]
     Active Substance: ASCIMINIB HYDROCHLORIDE
     Indication: Philadelphia positive chronic myeloid leukaemia
     Dosage: FREQUENCY : DAILY;?
     Route: 048
     Dates: start: 202411
  2. BENADRYL [Concomitant]
     Active Substance: DIPHENHYDRAMINE HYDROCHLORIDE
  3. BENEFIBER [Concomitant]
     Active Substance: STARCH, WHEAT
  4. BOSULIF [Concomitant]
     Active Substance: BOSUTINIB MONOHYDRATE
  5. DICYCLOMINE [Concomitant]
     Active Substance: DICYCLOMINE HYDROCHLORIDE
  6. ESTRADIOL [Concomitant]
     Active Substance: ESTRADIOL
  7. FAMOTIDINE [Suspect]
     Active Substance: FAMOTIDINE
  8. FLUCONAZOLE [Concomitant]
     Active Substance: FLUCONAZOLE
  9. FLUTICASONE [Concomitant]
     Active Substance: FLUTICASONE
  10. LEVOCETIRIZINE [Concomitant]
     Active Substance: LEVOCETIRIZINE
  11. LINZESS [Concomitant]
     Active Substance: LINACLOTIDE
  12. LOSARTAN [Concomitant]
     Active Substance: LOSARTAN
  13. Lotrimin AF External [Concomitant]
  14. Metronidazole External [Concomitant]
  15. MIRALAX [Concomitant]
     Active Substance: POLYETHYLENE GLYCOL 3350
  16. MONTELUKAST [Concomitant]
     Active Substance: MONTELUKAST
  17. ONDANSETRON [Concomitant]
     Active Substance: ONDANSETRON
  18. PROVERA [Concomitant]
     Active Substance: MEDROXYPROGESTERONE ACETATE
  19. Systane Ophthalmic [Concomitant]
  20. Vimmin D3 [Concomitant]

REACTIONS (4)
  - Musculoskeletal stiffness [None]
  - Joint stiffness [None]
  - Gastrointestinal disorder [None]
  - Fatigue [None]
